FAERS Safety Report 8301332-7 (Version None)
Quarter: 2012Q2

REPORT INFORMATION
  Report Type: 
  Country: None (occurrence: None)
  Receive Date: 20120420
  Receipt Date: 20120410
  Transmission Date: 20120825
  Serious: No
  Sender: FDA-Public Use
  Company Number: US-BAYER-2012-034975

PATIENT
  Sex: Female

DRUGS (2)
  1. YAZ [Suspect]
  2. PLAN B [Concomitant]
     Dosage: UNK
     Dates: start: 20120409, end: 20120409

REACTIONS (1)
  - NO ADVERSE EVENT [None]
